FAERS Safety Report 5221604-2 (Version None)
Quarter: 2007Q1

REPORT INFORMATION
  Report Type: 
  Country: None (occurrence: None)
  Receive Date: 20070129
  Receipt Date: 20070118
  Transmission Date: 20070707
  Serious: No
  Sender: FDA-Public Use
  Company Number: DE-ELI_LILLY_AND_COMPANY-DE200701003901

PATIENT
  Age: 19 Year
  Sex: Male

DRUGS (3)
  1. ZYPREXA [Suspect]
     Indication: SCHIZOPHRENIA
     Dosage: 15 MG, UNK
     Route: 048
     Dates: start: 20070104
  2. SOLIAN/FRA/ [Concomitant]
     Dates: end: 20070112
  3. TAVOR [Concomitant]
     Dosage: 2 MG, DAILY (1/D)

REACTIONS (1)
  - LYMPHOCYTE COUNT [None]
